FAERS Safety Report 18289307 (Version 1)
Quarter: 2020Q3

REPORT INFORMATION
  Report Type: Spontaneous
  Country: US (occurrence: US)
  Receive Date: 20200921
  Receipt Date: 20200921
  Transmission Date: 20201103
  Serious: Yes (Other)
  Sender: FDA-Public Use
  Company Number: None

PATIENT
  Age: 72 Year
  Sex: Female
  Weight: 54 kg

DRUGS (6)
  1. MONTELUKAST SODIUM CHEWABLE [Suspect]
     Active Substance: MONTELUKAST SODIUM
     Indication: EAR DISCOMFORT
     Dosage: ?          QUANTITY:30 TABLET(S);?
     Route: 048
     Dates: start: 20200811, end: 20200815
  2. VITAMIN B12 [Concomitant]
     Active Substance: CYANOCOBALAMIN
  3. VITAMIN D [Concomitant]
     Active Substance: VITAMIN D NOS
  4. K [Concomitant]
  5. HRT [Concomitant]
     Active Substance: UNSPECIFIED INGREDIENT
  6. BUT C [Concomitant]

REACTIONS (3)
  - Malaise [None]
  - Flushing [None]
  - Eye irritation [None]

NARRATIVE: CASE EVENT DATE: 20200814
